FAERS Safety Report 14367883 (Version 2)
Quarter: 2018Q1

REPORT INFORMATION
  Report Type: Report from Study
  Country: US (occurrence: US)
  Receive Date: 20180109
  Receipt Date: 20180216
  Transmission Date: 20180509
  Serious: Yes (Other)
  Sender: FDA-Public Use
  Company Number: US-BAUSCH-BL-2018-000279

PATIENT
  Sex: Female
  Weight: 74.91 kg

DRUGS (1)
  1. XIFAXAN [Suspect]
     Active Substance: RIFAXIMIN
     Indication: HEPATIC CIRRHOSIS
     Dosage: ABOUT SIX AND A HALF YEARS PRIOR
     Route: 065

REACTIONS (2)
  - Hepatic cirrhosis [Unknown]
  - Disease progression [Unknown]
